FAERS Safety Report 4742893-4 (Version None)
Quarter: 2005Q3

REPORT INFORMATION
  Report Type: 
  Country: None (occurrence: None)
  Receive Date: 20050811
  Receipt Date: 20050628
  Transmission Date: 20060218
  Serious: Yes (Disabling)
  Sender: FDA-Public Use
  Company Number: PHNR2005AU01030

PATIENT
  Age: 29 Year
  Sex: Female

DRUGS (7)
  1. SERENACE [Concomitant]
  2. TEGRETOL [Concomitant]
     Dosage: 100 MG, TID
  3. TEGRETOL [Concomitant]
     Dosage: 100 MG, BID
     Dates: start: 20050101
  4. EPILIM [Concomitant]
     Dosage: 100 MG, QD, AT NIGHT
  5. EPILIM [Concomitant]
     Dosage: 150 MG, QD, AT NIGHT
     Dates: start: 20050101
  6. MELLARIL [Suspect]
     Indication: ABNORMAL BEHAVIOUR
     Dosage: UNK, UNK
     Route: 048
     Dates: start: 20010101
  7. MELLARIL [Suspect]
     Dosage: 100MG(MORNING AND NIGHT) + 50MG(MIDDAY)
     Dates: end: 20050515

REACTIONS (11)
  - ACTIVITIES OF DAILY LIVING IMPAIRED [None]
  - ANXIETY [None]
  - ASOCIAL BEHAVIOUR [None]
  - DISTURBANCE IN ATTENTION [None]
  - DRUG WITHDRAWAL SYNDROME [None]
  - HALLUCINATION [None]
  - MOTOR DYSFUNCTION [None]
  - PSYCHIATRIC SYMPTOM [None]
  - SCHIZOPHRENIA [None]
  - SPEECH DISORDER [None]
  - WEIGHT DECREASED [None]
